FAERS Safety Report 11966367 (Version 1)
Quarter: 2016Q1

REPORT INFORMATION
  Report Type: Spontaneous
  Country: US (occurrence: US)
  Receive Date: 20160127
  Receipt Date: 20160127
  Transmission Date: 20160526
  Serious: No
  Sender: FDA-Public Use
  Company Number: US-ALLERGAN-1519042US

PATIENT
  Age: 65 Year
  Sex: Male
  Weight: 68.27 kg

DRUGS (1)
  1. BLEPHAMIDE [Suspect]
     Active Substance: PREDNISOLONE ACETATE\SULFACETAMIDE SODIUM
     Indication: INFECTION
     Dosage: 1/8 INCH RIBBON QD AT BEDTIME
     Dates: start: 20150706, end: 201507

REACTIONS (5)
  - Vision blurred [Recovered/Resolved]
  - Expired product administered [Unknown]
  - Inappropriate schedule of drug administration [Unknown]
  - Eyelid infection [Recovered/Resolved]
  - Eye infection [Recovered/Resolved]

NARRATIVE: CASE EVENT DATE: 201507
